FAERS Safety Report 6532650-0 (Version None)
Quarter: 2010Q1

REPORT INFORMATION
  Report Type: 
  Country: None (occurrence: None)
  Receive Date: 20100105
  Receipt Date: 20100104
  Transmission Date: 20100710
  Serious: Yes (Hospitalization)
  Sender: FDA-Public Use
  Company Number: EME2009001

PATIENT
  Age: 8 Year
  Sex: Female

DRUGS (2)
  1. EMETROL [Suspect]
     Indication: NAUSEA
     Dosage: AS DIRECTED
  2. EMETROL [Suspect]
     Indication: VOMITING
     Dosage: AS DIRECTED

REACTIONS (5)
  - DEHYDRATION [None]
  - MALAISE [None]
  - NAUSEA [None]
  - NO THERAPEUTIC RESPONSE [None]
  - VOMITING [None]
